FAERS Safety Report 5251063-5 (Version None)
Quarter: 2007Q1

REPORT INFORMATION
  Report Type: 
  Country: None (occurrence: None)
  Receive Date: 20070228
  Receipt Date: 20060817
  Transmission Date: 20070707
  Serious: No
  Sender: FDA-Public Use
  Company Number: US-GLAXOSMITHKLINE-A0617142A

PATIENT
  Age: 46 Year
  Sex: Female

DRUGS (6)
  1. LAMICTAL [Suspect]
     Indication: BIPOLAR DISORDER
     Dosage: 300MG PER DAY
     Route: 048
     Dates: start: 20060301
  2. TOPAMAX [Concomitant]
  3. ABILIFY [Concomitant]
  4. ALTACE [Concomitant]
  5. ALDACTAZIDE [Concomitant]
  6. PRAVACHOL [Concomitant]

REACTIONS (1)
  - ALOPECIA [None]
